FAERS Safety Report 6335449-3 (Version None)
Quarter: 2009Q3

REPORT INFORMATION
  Report Type: 
  Country: None (occurrence: None)
  Receive Date: 20090826
  Receipt Date: 20090811
  Transmission Date: 20100115
  Serious: Yes (Death)
  Sender: FDA-Public Use
  Company Number: 2009002430

PATIENT
  Age: 64 Year
  Sex: Female

DRUGS (8)
  1. ERLOTINIB HYDROCHLORIDE [Suspect]
     Indication: NON-SMALL CELL LUNG CANCER
     Dosage: ORAL
     Route: 048
  2. BLINDED ARQ 197 [Concomitant]
  3. NOVALGIN (METAMIZOLE SODIUM) [Concomitant]
  4. AMITRIPTYLINE HYDROCHLORIDE [Concomitant]
  5. LORAZEPAM [Concomitant]
  6. METOCLOPRAMIDE [Concomitant]
  7. LACTULOSE [Concomitant]
  8. RAMIPRIL [Concomitant]

REACTIONS (1)
  - PULMONARY EMBOLISM [None]
